FAERS Safety Report 7280061-5 (Version None)
Quarter: 2011Q1

REPORT INFORMATION
  Report Type: 
  Country: None (occurrence: None)
  Receive Date: 20110131
  Receipt Date: 20110118
  Transmission Date: 20110831
  Serious: Yes (Hospitalization, Disabling, Other)
  Sender: FDA-Public Use
  Company Number: 2010SP020793

PATIENT
  Age: 34 Year
  Sex: Female
  Weight: 67.586 kg

DRUGS (4)
  1. ASPIRIN [Suspect]
  2. NUVARING [Suspect]
     Indication: PRODUCT USED FOR UNKNOWN INDICATION
     Dates: start: 20090310, end: 20090730
  3. MULTI-VITAMIN [Concomitant]
  4. CLARITIN [Concomitant]

REACTIONS (38)
  - ANAEMIA [None]
  - FIBRIN D DIMER INCREASED [None]
  - DEPRESSION [None]
  - ANXIETY [None]
  - URINARY TRACT INFECTION [None]
  - WEIGHT DECREASED [None]
  - DEEP VEIN THROMBOSIS [None]
  - MUSCULOSKELETAL CHEST PAIN [None]
  - EPSTEIN-BARR VIRUS TEST POSITIVE [None]
  - OVARIAN CYST [None]
  - EYE SWELLING [None]
  - CYTOMEGALOVIRUS TEST POSITIVE [None]
  - CORONARY ARTERY THROMBOSIS [None]
  - NOCTURIA [None]
  - VAGINAL INFECTION [None]
  - ANGIOPATHY [None]
  - RESTLESS LEGS SYNDROME [None]
  - CARDIOVASCULAR DISORDER [None]
  - GENERAL PHYSICAL CONDITION ABNORMAL [None]
  - COUGH [None]
  - DYSPNOEA [None]
  - ABDOMINAL PAIN [None]
  - CHRONIC FATIGUE SYNDROME [None]
  - HUMAN PAPILLOMA VIRUS TEST POSITIVE [None]
  - HEART RATE IRREGULAR [None]
  - VARICOSE VEIN [None]
  - RASH [None]
  - CONSTIPATION [None]
  - LOBAR PNEUMONIA [None]
  - ERYTHEMA NODOSUM [None]
  - PRESYNCOPE [None]
  - PULMONARY EMBOLISM [None]
  - AORTIC EMBOLUS [None]
  - BRONCHITIS [None]
  - NIGHT SWEATS [None]
  - SLEEP APNOEA SYNDROME [None]
  - HYPOKALAEMIA [None]
  - ARTHRITIS [None]
